FAERS Safety Report 6569303-9 (Version None)
Quarter: 2010Q1

REPORT INFORMATION
  Report Type: 
  Country: None (occurrence: None)
  Receive Date: 20100201
  Receipt Date: 20100201
  Transmission Date: 20100710
  Serious: Yes (Hospitalization)
  Sender: FDA-Public Use
  Company Number: None

PATIENT
  Age: 88 Year
  Sex: Female

DRUGS (7)
  1. ZOLPIDEM [Suspect]
     Dosage: ONCE A DAY
     Route: 048
     Dates: start: 20090909, end: 20100121
  2. FISH OIL [Concomitant]
  3. VIT D [Concomitant]
  4. HERBAL SUPPLEMENTS [Concomitant]
  5. PRAVASTATIN SODIUM [Concomitant]
  6. ZETIA [Concomitant]
  7. ATENOLOL [Concomitant]

REACTIONS (6)
  - BALANCE DISORDER [None]
  - DIZZINESS [None]
  - NAUSEA [None]
  - PRODUCT COLOUR ISSUE [None]
  - PRODUCT SHAPE ISSUE [None]
  - RETCHING [None]
